FAERS Safety Report 25102599 (Version 2)
Quarter: 2025Q2

REPORT INFORMATION
  Report Type: Spontaneous
  Country: US (occurrence: US)
  Receive Date: 20250321
  Receipt Date: 20250418
  Transmission Date: 20250717
  Serious: No
  Sender: ROCHE
  Company Number: US-ROCHE-10000233753

PATIENT
  Age: 48 Year
  Sex: Female

DRUGS (2)
  1. OCREVUS ZUNOVO [Suspect]
     Active Substance: HYALURONIDASE-OCSQ\OCRELIZUMAB
     Indication: Relapsing-remitting multiple sclerosis
     Route: 058
     Dates: start: 201911
  2. ADDERALL [Concomitant]
     Active Substance: AMPHETAMINE ASPARTATE\AMPHETAMINE SULFATE\DEXTROAMPHETAMINE SACCHARATE\DEXTROAMPHETAMINE SULFATE

REACTIONS (2)
  - Back pain [Recovering/Resolving]
  - Pain in extremity [Recovering/Resolving]

NARRATIVE: CASE EVENT DATE: 20250316
